FAERS Safety Report 7986395-0 (Version None)
Quarter: 2011Q4

REPORT INFORMATION
  Report Type: 
  Country: None (occurrence: None)
  Receive Date: 20111216
  Receipt Date: 20110708
  Transmission Date: 20120403
  Serious: No
  Sender: FDA-Public Use
  Company Number: US-GLAXOSMITHKLINE-A0936061A

PATIENT
  Age: 79 Year
  Sex: Female

DRUGS (2)
  1. BETA BLOCKER [Concomitant]
  2. COREG CR [Suspect]
     Indication: HYPERTENSION
     Dosage: 10MG TWICE PER DAY
     Route: 048
     Dates: start: 20090101

REACTIONS (2)
  - BALANCE DISORDER [None]
  - HEART RATE INCREASED [None]
